FAERS Safety Report 18560041 (Version 1)
Quarter: 2020Q4

REPORT INFORMATION
  Report Type: Spontaneous
  Country: CY (occurrence: CY)
  Receive Date: 20201130
  Receipt Date: 20201130
  Transmission Date: 20210114
  Serious: Yes (Other)
  Sender: FDA-Public Use
  Company Number: CY-BRISTOL-MYERS SQUIBB COMPANY-BMS-2020-099684

PATIENT
  Age: 48 Year
  Sex: Female

DRUGS (2)
  1. ATORVASTATIN [Concomitant]
     Active Substance: ATORVASTATIN
     Indication: PRODUCT USED FOR UNKNOWN INDICATION
     Dosage: 1 DOSAGE FORM
     Route: 065
  2. TRIAMCINOLONE ACETONIDE. [Suspect]
     Active Substance: TRIAMCINOLONE ACETONIDE
     Indication: BACK PAIN
     Dosage: TWO DOSES OF IM TRIAMCINOLONE 40 MG EVERY OTHER DAY WERE INJECTED IM
     Route: 030

REACTIONS (2)
  - Adrenal insufficiency [Not Recovered/Not Resolved]
  - Cushing^s syndrome [Recovered/Resolved]
